FAERS Safety Report 4402808-5 (Version None)
Quarter: 2004Q3

REPORT INFORMATION
  Report Type: 
  Country: None (occurrence: None)
  Receive Date: 20040720
  Receipt Date: 20040720
  Transmission Date: 20050211
  Serious: Yes (Death)
  Sender: FDA-Public Use
  Company Number: None

PATIENT
  Age: 76 Year
  Sex: Male
  Weight: 86.1834 kg

DRUGS (3)
  1. ETOPOSIDE [Suspect]
     Indication: PROSTATE CANCER
     Dates: start: 20040628, end: 20040711
  2. EMCYT 50 MG BID [Suspect]
     Dates: start: 20040628, end: 20040711
  3. COUMADIN [Concomitant]

REACTIONS (10)
  - ABASIA [None]
  - ASTHENIA [None]
  - BLOOD PRESSURE DECREASED [None]
  - ELECTROCARDIOGRAM ABNORMAL [None]
  - FALL [None]
  - GENERAL PHYSICAL HEALTH DETERIORATION [None]
  - MYOCARDIAL ISCHAEMIA [None]
  - NEUTROPENIA [None]
  - PLATELET COUNT DECREASED [None]
  - PYREXIA [None]
